FAERS Safety Report 9048264 (Version 2)
Quarter: 2013Q1

REPORT INFORMATION
  Report Type: Spontaneous
  Country: US (occurrence: US)
  Receive Date: 20130204
  Receipt Date: 20130305
  Transmission Date: 20140127
  Serious: No
  Sender: FDA-Public Use
  Company Number: US-AMGEN-USASP2013001714

PATIENT
  Age: 50 Year
  Sex: Female
  Weight: 105.67 kg

DRUGS (6)
  1. ENBREL [Suspect]
     Indication: RHEUMATOID ARTHRITIS
     Dosage: 50 MG, QWK
     Dates: start: 20050101
  2. METHOTREXATE [Concomitant]
     Dosage: 17.5 MG, QWK
     Dates: start: 2007
  3. FOLIC ACID [Concomitant]
     Dosage: 1 MG, QD
  4. SULINDAC [Concomitant]
     Dosage: 150 MG, 1 TO 2 DAILY
     Dates: start: 20121101
  5. ACETAMINOPHEN [Concomitant]
     Dosage: PRN
  6. PREMARIN [Concomitant]
     Dosage: UNK UNK, QD
     Dates: start: 2007

REACTIONS (9)
  - Rash pruritic [Not Recovered/Not Resolved]
  - Rash papular [Not Recovered/Not Resolved]
  - Arthritis [Unknown]
  - Intervertebral disc degeneration [Unknown]
  - Tenderness [Unknown]
  - Incorrect storage of drug [Unknown]
  - Limb discomfort [Unknown]
  - Joint range of motion decreased [Unknown]
  - Weight increased [Unknown]
